FAERS Safety Report 4374804-8 (Version None)
Quarter: 2004Q2

REPORT INFORMATION
  Report Type: 
  Country: None (occurrence: None)
  Receive Date: 20040604
  Receipt Date: 20040525
  Transmission Date: 20050107
  Serious: Yes (Hospitalization)
  Sender: FDA-Public Use
  Company Number: 2004022885

PATIENT
  Age: 77 Year
  Sex: Male
  Weight: 98 kg

DRUGS (13)
  1. DIFLUCAN [Suspect]
     Indication: SUPERINFECTION
     Dosage: 200 MG (DAILY), ORAL
     Route: 048
     Dates: start: 20040227, end: 20040402
  2. LINEZOLID (LINEZOLID) [Suspect]
     Indication: OSTEOMYELITIS
     Dosage: 1200 MG (DAILY), ORAL
     Route: 048
     Dates: start: 20040316, end: 20040402
  3. ENALAPRIL MALEATE [Concomitant]
  4. NEBIVOLOL HYDROCHLORIDE (NEBIVOLOL HYDROCHLORIDE) [Concomitant]
  5. SIMVASTATIN [Concomitant]
  6. PANGROL ^BERLIN-CHEMIE^ (AMYLASE, BRINASE, LIPASE, PANCREATIN) [Concomitant]
  7. MOXONIDINE (MOXONIDINE) [Concomitant]
  8. ACETYLSALICYLIC ACID SRT [Concomitant]
  9. FUROSEMIDE [Concomitant]
  10. SODIUM BICARBONATE IN PLASTIC CONTAINER [Concomitant]
  11. HEPARIN [Concomitant]
  12. PREDNISONE TAB [Concomitant]
  13. CALCIUM CARBONATE (CALCIUM CARBONATE) [Concomitant]

REACTIONS (5)
  - BLOOD CREATININE INCREASED [None]
  - BLOOD UREA INCREASED [None]
  - HAEMOGLOBIN DECREASED [None]
  - THROMBOCYTOPENIA [None]
  - WHITE BLOOD CELL COUNT DECREASED [None]
